FAERS Safety Report 18603078 (Version 1)
Quarter: 2020Q4

REPORT INFORMATION
  Report Type: Spontaneous
  Country: US (occurrence: US)
  Receive Date: 20201210
  Receipt Date: 20201210
  Transmission Date: 20210114
  Serious: No
  Sender: FDA-Public Use
  Company Number: US-ASTRAZENECA-2020SF51921

PATIENT
  Age: 28321 Day
  Sex: Female
  Weight: 80.3 kg

DRUGS (1)
  1. BYDUREON BCISE [Suspect]
     Active Substance: EXENATIDE
     Indication: TYPE 2 DIABETES MELLITUS
     Route: 058
     Dates: start: 20201004

REACTIONS (4)
  - Incorrect dose administered [Unknown]
  - Injection site nodule [Unknown]
  - Injection site haemorrhage [Recovered/Resolved]
  - Vascular injury [Unknown]

NARRATIVE: CASE EVENT DATE: 20201101
